FAERS Safety Report 4438238-X (Version None)
Quarter: 2004Q3

REPORT INFORMATION
  Report Type: 
  Country: None (occurrence: None)
  Receive Date: 20040831
  Receipt Date: 20040625
  Transmission Date: 20050211
  Serious: No
  Sender: FDA-Public Use
  Company Number: US-GLAXOSMITHKLINE-A0516132A

PATIENT
  Age: 62 Year
  Sex: Male

DRUGS (6)
  1. WELLBUTRIN XL [Suspect]
     Dosage: 300MG PER DAY
     Route: 048
     Dates: start: 20040601
  2. ZOCOR [Concomitant]
  3. PREVACID [Concomitant]
  4. PLAVIX [Concomitant]
  5. KLONOPIN [Concomitant]
  6. ANTIHYPERTENSIVE [Concomitant]

REACTIONS (1)
  - FEELING JITTERY [None]
